FAERS Safety Report 25323851 (Version 1)
Quarter: 2025Q2

REPORT INFORMATION
  Report Type: Other
  Country: CA (occurrence: CA)
  Receive Date: 20250516
  Receipt Date: 20250516
  Transmission Date: 20250716
  Serious: Yes (Other)
  Sender: NUVO PHARMACEUTICALS
  Company Number: CA-Nuvo Pharmaceuticals Inc-2176863

PATIENT
  Age: 37 Year
  Sex: Female

DRUGS (4)
  1. POLYETHYLENE GLYCOL 3350 [Suspect]
     Active Substance: POLYETHYLENE GLYCOL 3350
     Indication: Constipation
  2. LABETALOL [Concomitant]
     Active Substance: LABETALOL
  3. COVID-19 vaccination [Concomitant]
  4. ACETAMINOPHEN [Concomitant]
     Active Substance: ACETAMINOPHEN

REACTIONS (1)
  - Anaphylactic reaction [Unknown]
